FAERS Safety Report 9933014 (Version 1)
Quarter: 2014Q1

REPORT INFORMATION
  Report Type: Spontaneous
  Country: FR (occurrence: None)
  Receive Date: 20140226
  Receipt Date: 20140226
  Transmission Date: 20141002
  Serious: Yes (Hospitalization)
  Sender: FDA-Public Use
  Company Number: FR-RRD-14-00017

PATIENT
  Age: 19 Year
  Sex: Female

DRUGS (6)
  1. TRANXENE [Suspect]
     Indication: MENTAL DISORDER
     Route: 048
  2. DEPAKOTE [Suspect]
     Indication: MENTAL DISORDER
     Route: 048
  3. LEPTICUR [Suspect]
     Indication: MENTAL DISORDER
     Route: 048
  4. NOZINAN [Suspect]
     Indication: MENTAL DISORDER
     Route: 048
  5. CLOPIXOL [Suspect]
     Indication: MENTAL DISORDER
     Dosage: 800 MG (1 IN 15 D) INTRAVENOUS (NOT OTHERWISE SPECIFIED)
     Route: 042
  6. VARNOLINE [Suspect]
     Indication: CONTRACEPTION
     Dates: end: 201109

REACTIONS (2)
  - Deep vein thrombosis [None]
  - Pulmonary embolism [None]
